FAERS Safety Report 18968928 (Version 1)
Quarter: 2021Q1

REPORT INFORMATION
  Report Type: Spontaneous
  Country: CH (occurrence: CH)
  Receive Date: 20210304
  Receipt Date: 20210304
  Transmission Date: 20210420
  Serious: Yes (Other)
  Sender: FDA-Public Use
  Company Number: NVSC2021CH039643

PATIENT
  Sex: Male

DRUGS (4)
  1. TOBREX [Suspect]
     Active Substance: TOBRAMYCIN
     Dosage: UNK, TID
     Route: 065
     Dates: start: 20210202, end: 20210206
  2. TOBRADEX [Suspect]
     Active Substance: DEXAMETHASONE\TOBRAMYCIN
     Dosage: UNK UNK, TID
     Route: 065
     Dates: start: 20210202, end: 20210206
  3. TOBRADEX [Suspect]
     Active Substance: DEXAMETHASONE\TOBRAMYCIN
     Indication: BLEPHARITIS
     Dosage: 1 DF, TID (DEXAMETHASONE 1MG/G; TOBRAMYCINE 3MG/G)
     Route: 065
     Dates: start: 20210121, end: 20210131
  4. TOBREX [Suspect]
     Active Substance: TOBRAMYCIN
     Indication: BLEPHARITIS
     Dosage: UNK UNK, TID (DOSE: 3MG/ML)
     Route: 065
     Dates: start: 20210121, end: 20210131

REACTIONS (2)
  - Tinnitus [Not Recovered/Not Resolved]
  - Tinnitus [Recovered/Resolved]

NARRATIVE: CASE EVENT DATE: 20210129
